FAERS Safety Report 14901952 (Version 1)
Quarter: 2018Q2

REPORT INFORMATION
  Report Type: Spontaneous
  Country: CN (occurrence: CN)
  Receive Date: 20180516
  Receipt Date: 20180516
  Transmission Date: 20180711
  Serious: Yes (Other)
  Sender: FDA-Public Use
  Company Number: CN-BAYER-2018-090140

PATIENT
  Age: 69 Year
  Sex: Female

DRUGS (5)
  1. HEPARIN [Interacting]
     Active Substance: HEPARIN SODIUM
  2. CLOPIDOGREL [Interacting]
     Active Substance: CLOPIDOGREL BISULFATE
  3. METOPROLOL. [Concomitant]
     Active Substance: METOPROLOL
  4. ACETYLSALICYLIC ACID({=100 MG) [Suspect]
     Active Substance: ASPIRIN
  5. PANTOPRAZOLE [Concomitant]
     Active Substance: PANTOPRAZOLE

REACTIONS (4)
  - Labelled drug-drug interaction medication error [None]
  - Platelet count decreased [None]
  - Drug administration error [None]
  - Occult blood positive [None]
